FAERS Safety Report 19120576 (Version 1)
Quarter: 2021Q2

REPORT INFORMATION
  Report Type: Spontaneous
  Country: US (occurrence: US)
  Receive Date: 20210409
  Receipt Date: 20210409
  Transmission Date: 20210717
  Serious: No
  Sender: FDA-Public Use
  Company Number: None

PATIENT
  Age: 70 Year
  Sex: Male
  Weight: 56 kg

DRUGS (12)
  1. DRONABINOL. [Concomitant]
     Active Substance: DRONABINOL
  2. TRAMADOL HCL [Concomitant]
     Active Substance: TRAMADOL HYDROCHLORIDE
  3. ZARXIO [Suspect]
     Active Substance: FILGRASTIM-SNDZ
     Indication: LUNG NEOPLASM MALIGNANT
     Route: 048
     Dates: start: 20210329
  4. GEMCITABINE HCL [Concomitant]
     Active Substance: GEMCITABINE HYDROCHLORIDE
  5. CISPLATIN. [Concomitant]
     Active Substance: CISPLATIN
  6. LASIX [Concomitant]
     Active Substance: FUROSEMIDE
  7. PRAVASTATIN SODIUM. [Concomitant]
     Active Substance: PRAVASTATIN SODIUM
  8. PANTOPRAZOLE SODIUM. [Concomitant]
     Active Substance: PANTOPRAZOLE SODIUM
  9. TRAZODONE HYDROCHLORIDE. [Concomitant]
     Active Substance: TRAZODONE HYDROCHLORIDE
  10. CALCIUM [Concomitant]
     Active Substance: CALCIUM
  11. ROBAXIN [Concomitant]
     Active Substance: METHOCARBAMOL
  12. SPIRONOLACTONE. [Concomitant]
     Active Substance: SPIRONOLACTONE

REACTIONS (1)
  - Hospice care [None]

NARRATIVE: CASE EVENT DATE: 20210409
